FAERS Safety Report 6193804-9 (Version None)
Quarter: 2009Q2

REPORT INFORMATION
  Report Type: 
  Country: None (occurrence: None)
  Receive Date: 20090514
  Receipt Date: 20090504
  Transmission Date: 20091009
  Serious: Yes (Hospitalization)
  Sender: FDA-Public Use
  Company Number: 2008SP004361

PATIENT
  Age: 52 Year
  Sex: Female
  Weight: 73.9363 kg

DRUGS (3)
  1. PEG-INTRON [Suspect]
     Indication: HEPATITIS C
     Dosage: 150 MCG; QW; SC
     Route: 058
     Dates: start: 20080212, end: 20080301
  2. RIBAVIRIN [Suspect]
     Indication: HEPATITIS
     Dosage: 1000 MG; QD; PO; 800 MG; QD; PO
     Route: 048
     Dates: start: 20080228, end: 20080301
  3. RIBAVIRIN [Suspect]
     Indication: HEPATITIS
     Dosage: 1000 MG; QD; PO; 800 MG; QD; PO
     Route: 048
     Dates: start: 20080212

REACTIONS (26)
  - ABDOMINAL DISTENSION [None]
  - ALANINE AMINOTRANSFERASE INCREASED [None]
  - ANAEMIA [None]
  - ASPARTATE AMINOTRANSFERASE INCREASED [None]
  - BLOOD BILIRUBIN INCREASED [None]
  - DEHYDRATION [None]
  - DIARRHOEA [None]
  - DYSPEPSIA [None]
  - DYSPHAGIA [None]
  - DYSSTASIA [None]
  - FATIGUE [None]
  - GASTROOESOPHAGEAL REFLUX DISEASE [None]
  - HAEMOCHROMATOSIS [None]
  - HYPOPHAGIA [None]
  - INSOMNIA [None]
  - NAUSEA [None]
  - NEUTROPHIL COUNT DECREASED [None]
  - OEDEMA PERIPHERAL [None]
  - OESOPHAGEAL DISCOMFORT [None]
  - SALIVARY HYPERSECRETION [None]
  - SPEECH DISORDER [None]
  - SWELLING FACE [None]
  - TINNITUS [None]
  - VOMITING [None]
  - WEIGHT DECREASED [None]
  - WHITE BLOOD CELL COUNT DECREASED [None]
